FAERS Safety Report 14818228 (Version 4)
Quarter: 2019Q2

REPORT INFORMATION
  Report Type: Spontaneous
  Country: US (occurrence: US)
  Receive Date: 20180427
  Receipt Date: 20190509
  Transmission Date: 20190711
  Serious: No
  Sender: FDA-Public Use
  Company Number: US-BRISTOL-MYERS SQUIBB COMPANY-BMS-2018-038879

PATIENT
  Age: 57 Year
  Sex: Female

DRUGS (1)
  1. ORENCIA [Suspect]
     Active Substance: ABATACEPT
     Indication: RHEUMATOID ARTHRITIS
     Dosage: 125 MG, QWK
     Route: 058
     Dates: start: 20180403

REACTIONS (5)
  - Sinusitis [Not Recovered/Not Resolved]
  - Influenza [Recovered/Resolved]
  - Dizziness [Unknown]
  - Ill-defined disorder [Unknown]
  - Headache [Unknown]

NARRATIVE: CASE EVENT DATE: 20180424
